FAERS Safety Report 11177578 (Version 1)
Quarter: 2015Q2

REPORT INFORMATION
  Report Type: Spontaneous
  Country: US (occurrence: None)
  Receive Date: 20150608
  Receipt Date: 20150608
  Transmission Date: 20150821
  Serious: No
  Sender: FDA-Public Use
  Company Number: None

PATIENT
  Age: 7 Year
  Sex: Female
  Weight: 20.41 kg

DRUGS (1)
  1. RISPERIDONE. [Suspect]
     Active Substance: RISPERIDONE
     Route: 048
     Dates: start: 20150309, end: 20150504

REACTIONS (3)
  - Weight increased [None]
  - Breast enlargement [None]
  - Drug withdrawal syndrome [None]

NARRATIVE: CASE EVENT DATE: 20150309
